FAERS Safety Report 24690869 (Version 3)
Quarter: 2025Q1

REPORT INFORMATION
  Report Type: Spontaneous
  Country: US (occurrence: US)
  Receive Date: 20241203
  Receipt Date: 20250115
  Transmission Date: 20250409
  Serious: Yes (Death)
  Sender: NOVARTIS
  Company Number: US-002147023-NVSC2024US230577

PATIENT
  Age: 73 Year
  Sex: Male

DRUGS (1)
  1. PLUVICTO [Suspect]
     Active Substance: LUTETIUM LU-177 VIPIVOTIDE TETRAXETAN
     Indication: Hormone-refractory prostate cancer
     Route: 042
     Dates: start: 20240905, end: 20241205

REACTIONS (2)
  - Death [Fatal]
  - General physical health deterioration [Unknown]

NARRATIVE: CASE EVENT DATE: 20241213
